FAERS Safety Report 7995606-7 (Version None)
Quarter: 2011Q4

REPORT INFORMATION
  Report Type: 
  Country: None (occurrence: None)
  Receive Date: 20111220
  Receipt Date: 20111208
  Transmission Date: 20120403
  Serious: Yes (Hospitalization, Disabling, Other)
  Sender: FDA-Public Use
  Company Number: US-MERCK-1012USA02294

PATIENT
  Age: 62 Year
  Sex: Female
  Weight: 84 kg

DRUGS (3)
  1. FOSAMAX [Suspect]
     Route: 048
  2. OYST CAL D [Concomitant]
     Indication: OSTEOPOROSIS
     Route: 048
     Dates: start: 20080222
  3. FOSAMAX [Suspect]
     Indication: OSTEOPOROSIS
     Route: 048
     Dates: start: 19970101, end: 20090201

REACTIONS (64)
  - PLEURAL EFFUSION [None]
  - INTERSTITIAL LUNG DISEASE [None]
  - ADVERSE EVENT [None]
  - ENTEROCOCCAL INFECTION [None]
  - PNEUMONIA [None]
  - ATELECTASIS [None]
  - OSTEOPENIA [None]
  - MUSCLE ATROPHY [None]
  - TOOTH DISORDER [None]
  - TONSILLAR DISORDER [None]
  - PULMONARY FIBROSIS [None]
  - HYPERGAMMAGLOBULINAEMIA [None]
  - MITRAL VALVE PROLAPSE [None]
  - CHOLELITHIASIS [None]
  - OLIGURIA [None]
  - WEIGHT DECREASED [None]
  - LIMB ASYMMETRY [None]
  - RIB FRACTURE [None]
  - HAEMATOMA [None]
  - FALL [None]
  - SPINAL OSTEOARTHRITIS [None]
  - DEVICE FAILURE [None]
  - FRACTURE NONUNION [None]
  - UTERINE DISORDER [None]
  - WRIST FRACTURE [None]
  - SPLEEN DISORDER [None]
  - EMPHYSEMA [None]
  - CARDIOMEGALY [None]
  - BRONCHITIS [None]
  - BONE DISORDER [None]
  - BONE SCAN ABNORMAL [None]
  - BREAST CANCER FEMALE [None]
  - HAEMATOCRIT ABNORMAL [None]
  - LOCALISED INTRAABDOMINAL FLUID COLLECTION [None]
  - PLEURAL FIBROSIS [None]
  - HYPERTENSION [None]
  - ARTHROPATHY [None]
  - FEMUR FRACTURE [None]
  - STRESS FRACTURE [None]
  - PSEUDOMONAS INFECTION [None]
  - DEEP VEIN THROMBOSIS [None]
  - OSTEOARTHRITIS [None]
  - HYPOTENSION [None]
  - URINE OUTPUT DECREASED [None]
  - SCOLIOSIS [None]
  - EMBOLISM [None]
  - DIVERTICULUM [None]
  - LUNG NEOPLASM [None]
  - BONE DENSITY DECREASED [None]
  - HAEMORRHAGIC ANAEMIA [None]
  - HAEMATOMA INFECTION [None]
  - PERICARDIAL EFFUSION [None]
  - INFECTION [None]
  - COMPRESSION FRACTURE [None]
  - HAEMORRHAGE [None]
  - IMPAIRED HEALING [None]
  - BUNION [None]
  - PELVIC FRACTURE [None]
  - VASCULAR CALCIFICATION [None]
  - PULMONARY GRANULOMA [None]
  - GASTROOESOPHAGEAL REFLUX DISEASE [None]
  - MORGANELLA INFECTION [None]
  - ADHESION [None]
  - AORTIC DISORDER [None]
